FAERS Safety Report 9659118 (Version 2)
Quarter: 2013Q4

REPORT INFORMATION
  Report Type: Report from Study
  Country: US (occurrence: US)
  Receive Date: 20131031
  Receipt Date: 20131105
  Transmission Date: 20140711
  Serious: Yes (Hospitalization)
  Sender: FDA-Public Use
  Company Number: US-MERCK-1310USA012398

PATIENT
  Age: 83 Year
  Sex: Male
  Weight: 52.1 kg

DRUGS (4)
  1. VORINOSTAT [Suspect]
     Indication: CHRONIC MYELOMONOCYTIC LEUKAEMIA
     Dosage: 300 MG, BID ON DAYS 3-9, CYCLE 1
     Route: 048
     Dates: start: 20130907
  2. VORINOSTAT [Suspect]
     Dosage: 300 MG, BID ON DAYS 3-9, CYCLE 2
     Route: 048
     Dates: start: 20131008
  3. AZACITIDINE [Suspect]
     Indication: CHRONIC MYELOMONOCYTIC LEUKAEMIA
     Dosage: 75 MG/M2 SQ OR IV ON DAYS 1-7 OR 75 MG/M2 SQ OR IV ON DAYS 1-5 AND DAYS 8-9, CYCLE 1
     Route: 042
     Dates: start: 20130905
  4. AZACITIDINE [Suspect]
     Dosage: 75 MG/M2 SQ OR IV ON DAYS 1-7 OR 75 MG/M2 SQ OR IV ON DAYS 1-5 AND DAYS 8-9, CYCLE 2
     Route: 042
     Dates: start: 20131008

REACTIONS (2)
  - Pyrexia [Not Recovered/Not Resolved]
  - Haematuria [Not Recovered/Not Resolved]
